FAERS Safety Report 8141226-3 (Version None)
Quarter: 2012Q1

REPORT INFORMATION
  Report Type: 
  Country: None (occurrence: None)
  Receive Date: 20120216
  Receipt Date: 20120206
  Transmission Date: 20120608
  Serious: Yes (Death)
  Sender: FDA-Public Use
  Company Number: US-SANOFI-AVENTIS-2011SA085432

PATIENT
  Age: 77 Year
  Sex: Female
  Weight: 54.1 kg

DRUGS (20)
  1. HYDROCHLOROTHIAZIDE [Concomitant]
     Indication: BLOOD PRESSURE
     Route: 048
  2. PHENERGAN [Concomitant]
     Indication: NAUSEA
     Dosage: 25 MG EVERY 4 TO 6 HOURS AS NEEDED
     Route: 048
  3. CALCIUM CARBONATE [Concomitant]
     Dosage: 2 TABLETS ONCE A DAY
     Route: 048
  4. LOTREL [Concomitant]
     Indication: BLOOD PRESSURE
     Dosage: 5 MG-20 MG ORAL CAPSULE ONCE A DAY
     Route: 048
  5. PHENERGAN [Concomitant]
     Dosage: 25 MG EVERY 4 TO 6 HOURS AS NEEDED
     Route: 054
  6. AVELOX [Concomitant]
     Indication: URINARY TRACT INFECTION
     Dates: start: 20111201, end: 20111201
  7. DIPHENHYDRAMINE HCL [Concomitant]
     Indication: PREMEDICATION
     Route: 042
     Dates: start: 20111214
  8. CABAZITAXEL [Suspect]
     Dosage: WEEKLY
     Route: 041
     Dates: start: 20111221, end: 20111221
  9. LOPERAMIDE HYDROCHLORIDE/SIMETICONE [Concomitant]
     Dosage: 2MG/125 MG AS NEEDED
     Route: 048
  10. POTASSIUM CHLORIDE [Concomitant]
     Route: 048
  11. SPIRIVA [Concomitant]
     Indication: RESPIRATORY DISORDER
     Dosage: 18 MCG INHALATION CAPSULE ONCE A DAY
  12. ZOFRAN [Concomitant]
     Indication: NAUSEA
     Dosage: EVERY 8 TO 12 HOURS
     Route: 048
  13. VITAMIN B NOS AND ASCORBIC ACID AND CALCIUM AND RETINOL AND ZINC AND T [Concomitant]
  14. ALBUTEROL SULFATE AUTOHALER [Concomitant]
     Indication: WHEEZING
     Dosage: 90MCG/INH 2 PUFFS AS NEEDED EVERY 6 HOURS
  15. MEGACE [Concomitant]
     Dosage: 4 TEASPOONS DAILY DOSE:40 MILLIGRAM(S)/MILLILITRE
     Route: 048
  16. RANITIDINE [Concomitant]
     Indication: PREMEDICATION
     Route: 042
     Dates: start: 20111214
  17. ALOXI [Concomitant]
     Indication: PREMEDICATION
     Route: 042
     Dates: start: 20111214
  18. CABAZITAXEL [Suspect]
     Dosage: WEEKLY
     Route: 041
     Dates: start: 20111214, end: 20111214
  19. LORTAB [Concomitant]
     Indication: PAIN
     Dosage: 10/500 500 MG-10 MG ORAL TABLET  2 EVERY 6 HOURS AS NEEDED
     Route: 048
  20. DEXAMETHASONE [Concomitant]
     Indication: PREMEDICATION
     Route: 042
     Dates: start: 20111214

REACTIONS (5)
  - LUNG DISORDER [None]
  - DEATH [None]
  - LUNG ADENOCARCINOMA STAGE IV [None]
  - CARDIAC DISORDER [None]
  - NEOPLASM PROGRESSION [None]
